FAERS Safety Report 14676376 (Version 1)
Quarter: 2018Q1

REPORT INFORMATION
  Report Type: Spontaneous
  Country: US (occurrence: US)
  Receive Date: 20180323
  Receipt Date: 20180323
  Transmission Date: 20180509
  Serious: Yes (Hospitalization)
  Sender: FDA-Public Use
  Company Number: None

PATIENT
  Age: 54 Year
  Sex: Male
  Weight: 81.65 kg

DRUGS (11)
  1. LIDOCAINE. [Concomitant]
     Active Substance: LIDOCAINE
  2. CLONIDINE. [Concomitant]
     Active Substance: CLONIDINE
  3. ALBUTEROL. [Concomitant]
     Active Substance: ALBUTEROL
  4. FUROSEMIDE. [Concomitant]
     Active Substance: FUROSEMIDE
  5. IBUPROFEN. [Concomitant]
     Active Substance: IBUPROFEN
  6. HYDRALAZINE [Concomitant]
     Active Substance: HYDRALAZINE HYDROCHLORIDE
  7. INHALATION SOLUTION [Concomitant]
  8. TERAZOSIN [Concomitant]
     Active Substance: TERAZOSIN\TERAZOSIN HYDROCHLORIDE
  9. GABAPENTIN. [Suspect]
     Active Substance: GABAPENTIN
     Indication: ILL-DEFINED DISORDER
     Route: 048
     Dates: start: 201711, end: 20180120
  10. LARATADINE [Concomitant]
  11. SIMVASTATIN. [Concomitant]
     Active Substance: SIMVASTATIN

REACTIONS (14)
  - Pyrexia [None]
  - Fatigue [None]
  - Unevaluable event [None]
  - Dyspnoea [None]
  - Contusion [None]
  - Myalgia [None]
  - Self-injurious ideation [None]
  - Infection [None]
  - Panic attack [None]
  - Urticaria [None]
  - Pharyngeal oedema [None]
  - Anxiety [None]
  - Swollen tongue [None]
  - Rash [None]
